FAERS Safety Report 4351423-0 (Version None)
Quarter: 2004Q2

REPORT INFORMATION
  Report Type: 
  Country: None (occurrence: None)
  Receive Date: 20040503
  Receipt Date: 20040305
  Transmission Date: 20050107
  Serious: Yes (Hospitalization)
  Sender: FDA-Public Use
  Company Number: DE-BRISTOL-MYERS SQUIBB COMPANY-12526232

PATIENT
  Age: 62 Year
  Sex: Female
  Weight: 60 kg

DRUGS (2)
  1. TAXOL [Suspect]
     Indication: OVARIAN CANCER
     Route: 042
     Dates: start: 20040301, end: 20040301
  2. CARBOPLATIN [Suspect]
     Indication: OVARIAN CANCER
     Route: 042
     Dates: start: 20040301, end: 20040301

REACTIONS (6)
  - C-REACTIVE PROTEIN INCREASED [None]
  - DIARRHOEA [None]
  - ESCHERICHIA INFECTION [None]
  - HEADACHE [None]
  - RECTAL HAEMORRHAGE [None]
  - VOMITING [None]
